FAERS Safety Report 25133435 (Version 3)
Quarter: 2025Q2

REPORT INFORMATION
  Report Type: Spontaneous
  Country: CA (occurrence: CA)
  Receive Date: 20250328
  Receipt Date: 20250424
  Transmission Date: 20250717
  Serious: Yes (Death, Hospitalization, Other)
  Sender: REGENERON
  Company Number: CA-BAYER-2025A025732

PATIENT
  Sex: Male

DRUGS (3)
  1. EYLEA [Suspect]
     Active Substance: AFLIBERCEPT
     Indication: Retinal vein occlusion
     Dates: start: 20241025, end: 20241025
  2. EYLEA [Suspect]
     Active Substance: AFLIBERCEPT
     Dates: start: 20241125, end: 20241125
  3. EYLEA [Suspect]
     Active Substance: AFLIBERCEPT
     Dates: start: 20250106

REACTIONS (4)
  - Death [Fatal]
  - Renal impairment [Unknown]
  - Cardiac disorder [Unknown]
  - Weight decreased [Unknown]

NARRATIVE: CASE EVENT DATE: 20250306
